FAERS Safety Report 18476282 (Version 2)
Quarter: 2020Q4

REPORT INFORMATION
  Report Type: Spontaneous
  Country: US (occurrence: US)
  Receive Date: 20201106
  Receipt Date: 20201110
  Transmission Date: 20210114
  Serious: No
  Sender: FDA-Public Use
  Company Number: US-PFIZER INC-2020239794

PATIENT
  Age: 77 Year
  Sex: Male
  Weight: 73.94 kg

DRUGS (2)
  1. METHOTREXATE. [Concomitant]
     Active Substance: METHOTREXATE
     Dosage: UNK
  2. XELJANZ XR [Suspect]
     Active Substance: TOFACITINIB CITRATE
     Indication: RHEUMATOID ARTHRITIS
     Dosage: 11 MG, 1X/DAY (1 TABLET A DAY BY MOUTH IN THE MORNING)
     Route: 048
     Dates: start: 20201001

REACTIONS (1)
  - Dyspnoea [Not Recovered/Not Resolved]
